FAERS Safety Report 8887857 (Version 2)
Quarter: 2013Q1

REPORT INFORMATION
  Report Type: Spontaneous
  Country: JP (occurrence: JP)
  Receive Date: 20121106
  Receipt Date: 20130306
  Transmission Date: 20140127
  Serious: No
  Sender: FDA-Public Use
  Company Number: JP-EISAI INC-E7389-03168-SPO-JP

PATIENT
  Age: 62 Year
  Sex: Female

DRUGS (2)
  1. HALAVEN [Suspect]
     Indication: BREAST CANCER RECURRENT
     Route: 041
     Dates: start: 20120910
  2. HERCEPTIN [Concomitant]
     Indication: BREAST CANCER RECURRENT
     Route: 041
     Dates: start: 20120910

REACTIONS (1)
  - Dysphonia [Recovered/Resolved]
